FAERS Safety Report 14087351 (Version 4)
Quarter: 2018Q4

REPORT INFORMATION
  Report Type: Spontaneous
  Country: CA (occurrence: CA)
  Receive Date: 20171013
  Receipt Date: 20181126
  Transmission Date: 20190204
  Serious: Yes (Hospitalization)
  Sender: FDA-Public Use
  Company Number: CA-SA-2017SA191788

PATIENT
  Age: 65 Year
  Sex: Male

DRUGS (11)
  1. CORTISONE ACETATE. [Suspect]
     Active Substance: CORTISONE ACETATE
     Dosage: 2.5 MG,UNK
     Route: 065
  2. CORTISONE ACETATE. [Suspect]
     Active Substance: CORTISONE ACETATE
     Dosage: 5 MG,UNK
     Route: 065
  3. AMLODIPINE [Concomitant]
     Active Substance: AMLODIPINE BESYLATE
     Indication: HYPERTENSION
     Dosage: 5 MG,QD
     Route: 065
     Dates: end: 20171020
  4. PARACETAMOL [Concomitant]
     Active Substance: ACETAMINOPHEN
     Dosage: UNK UNK,UNK
     Route: 065
  5. LEFLUNOMIDE. [Suspect]
     Active Substance: LEFLUNOMIDE
     Dosage: UNK UNK,UNK
     Route: 048
     Dates: start: 20170925, end: 20170929
  6. PLAQUENIL [Suspect]
     Active Substance: HYDROXYCHLOROQUINE SULFATE
     Indication: RHEUMATOID ARTHRITIS
     Dosage: UNK
     Route: 065
  7. XELJANZ [Suspect]
     Active Substance: TOFACITINIB CITRATE
     Indication: RHEUMATOID ARTHRITIS
     Dosage: 5 MG,BID
     Route: 048
     Dates: start: 20170306
  8. METHOTREXATE. [Concomitant]
     Active Substance: METHOTREXATE
  9. PREDNISONE. [Concomitant]
     Active Substance: PREDNISONE
  10. LEFLUNOMIDE. [Suspect]
     Active Substance: LEFLUNOMIDE
     Indication: RHEUMATOID ARTHRITIS
     Dosage: 10 MG,QD
     Route: 048
  11. LEFLUNOMIDE. [Suspect]
     Active Substance: LEFLUNOMIDE
     Dosage: UNK UNK,UNK
     Route: 048

REACTIONS (11)
  - Chest discomfort [Unknown]
  - Arthritis [Unknown]
  - Drug ineffective [Unknown]
  - Pain in extremity [Unknown]
  - Condition aggravated [Unknown]
  - Tinnitus [Recovered/Resolved]
  - Hypertension [Recovered/Resolved]
  - Diarrhoea [Unknown]
  - Joint swelling [Recovered/Resolved]
  - Pain [Recovering/Resolving]
  - Exostosis [Unknown]

NARRATIVE: CASE EVENT DATE: 201705
